FAERS Safety Report 9915671 (Version 1)
Quarter: 2014Q1

REPORT INFORMATION
  Report Type: Report from Study
  Country: US (occurrence: US)
  Receive Date: 20140221
  Receipt Date: 20140221
  Transmission Date: 20141002
  Serious: Yes (Death)
  Sender: FDA-Public Use
  Company Number: US-ROCHE-1321478

PATIENT
  Age: 62 Year
  Sex: Male

DRUGS (9)
  1. AVASTIN [Suspect]
     Indication: COLON CANCER
     Route: 042
     Dates: start: 201101, end: 201111
  2. AVASTIN [Suspect]
     Indication: METASTASES TO LUNG
     Route: 042
     Dates: start: 20120131
  3. XELODA [Suspect]
     Indication: COLON CANCER
     Dosage: XELERI
     Route: 042
     Dates: start: 2012
  4. XELODA [Suspect]
     Indication: METASTASES TO LUNG
  5. IRINOTECAN [Concomitant]
     Dosage: XELERI
     Route: 065
     Dates: start: 2012
  6. FOLINIC ACID [Concomitant]
     Route: 065
     Dates: start: 201101, end: 201111
  7. FLUOROURACIL [Concomitant]
     Route: 065
     Dates: start: 201101, end: 201111
  8. OXALIPLATIN [Concomitant]
     Route: 065
     Dates: start: 201101, end: 201111
  9. IRINOTECAN [Concomitant]

REACTIONS (3)
  - Death [Fatal]
  - Disease progression [Unknown]
  - Diarrhoea [Unknown]
